FAERS Safety Report 8231495-3 (Version None)
Quarter: 2012Q1

REPORT INFORMATION
  Report Type: 
  Country: None (occurrence: None)
  Receive Date: 20120320
  Receipt Date: 20120307
  Transmission Date: 20120608
  Serious: Yes (Hospitalization)
  Sender: FDA-Public Use
  Company Number: 2012SP013124

PATIENT
  Age: 27 Year
  Sex: Female
  Weight: 48 kg

DRUGS (1)
  1. GANIRELIX ACETATE INJECTION [Suspect]
     Indication: PREVENTION OF PREMATURE OVULATION
     Dosage: 0.25 MG; SC
     Route: 058
     Dates: start: 20110816, end: 20110818

REACTIONS (2)
  - ABORTION THREATENED [None]
  - MATERNAL EXPOSURE DURING PREGNANCY [None]
